FAERS Safety Report 4617874-1 (Version None)
Quarter: 2005Q1

REPORT INFORMATION
  Report Type: 
  Country: None (occurrence: None)
  Receive Date: 20050324
  Receipt Date: 20050315
  Transmission Date: 20050727
  Serious: Yes (Hospitalization)
  Sender: FDA-Public Use
  Company Number: FR-BRISTOL-MYERS SQUIBB COMPANY-12898052

PATIENT
  Age: 55 Year
  Sex: Male

DRUGS (3)
  1. VIDEX [Suspect]
     Route: 048
     Dates: start: 20041025
  2. EPIVIR [Suspect]
     Dates: start: 20041025
  3. KALETRA [Suspect]
     Dates: start: 20041025

REACTIONS (1)
  - LYMPHOPENIA [None]
